FAERS Safety Report 18262763 (Version 1)
Quarter: 2020Q3

REPORT INFORMATION
  Report Type: Spontaneous
  Country: US (occurrence: US)
  Receive Date: 20200914
  Receipt Date: 20200914
  Transmission Date: 20201103
  Serious: No
  Sender: FDA-Public Use
  Company Number: US-JNJFOC-20200907462

PATIENT

DRUGS (1)
  1. STELARA [Suspect]
     Active Substance: USTEKINUMAB
     Indication: PRODUCT USED FOR UNKNOWN INDICATION
     Route: 058

REACTIONS (7)
  - Burning sensation [Unknown]
  - Arthritis [Unknown]
  - Muscle tightness [Unknown]
  - Pruritus [Unknown]
  - Skin exfoliation [Unknown]
  - Pain [Unknown]
  - Gait disturbance [Unknown]
